FAERS Safety Report 8016230-6 (Version None)
Quarter: 2011Q4

REPORT INFORMATION
  Report Type: 
  Country: None (occurrence: None)
  Receive Date: 20111230
  Receipt Date: 20111219
  Transmission Date: 20120403
  Serious: Yes (Other)
  Sender: FDA-Public Use
  Company Number: BR-SANOFI-AVENTIS-2011SA083346

PATIENT
  Age: 71 Year
  Sex: Female
  Weight: 72 kg

DRUGS (10)
  1. ISOSORBIDE MONONITRATE [Concomitant]
     Route: 048
  2. GALVUS [Concomitant]
     Indication: BLOOD GLUCOSE ABNORMAL
     Route: 048
  3. METFORMIN HCL [Concomitant]
     Indication: BLOOD GLUCOSE ABNORMAL
     Route: 048
  4. LANTUS [Suspect]
     Dosage: FORM: CARTRIDGESTART DATE:1 YEAR AGODOSE:56IU IN MORNING AND 20IU AT NIGHT
  5. ASPIRIN [Concomitant]
     Indication: THROMBOSIS PROPHYLAXIS
     Route: 048
  6. REGULAR INSULIN [Concomitant]
  7. LANTUS [Suspect]
     Indication: TYPE 2 DIABETES MELLITUS
     Dosage: FORM: CARTRIDGESTART DATE:2 YEARS AGO
  8. CLIKSTAR [Suspect]
     Indication: DEVICE THERAPY
  9. NPH INSULIN [Concomitant]
  10. APIDRA [Suspect]
     Indication: TYPE 2 DIABETES MELLITUS
     Dosage: DOSE:5 IU AFTER BREAKFAST, LUNCH AND DINNER
     Route: 065

REACTIONS (3)
  - DRUG ADMINISTRATION ERROR [None]
  - TREMOR [None]
  - PARKINSON'S DISEASE [None]
